FAERS Safety Report 9219991 (Version 1)
Quarter: 2013Q1

REPORT INFORMATION
  Report Type: Spontaneous
  Country: US (occurrence: None)
  Receive Date: 20120830
  Receipt Date: 20120830
  Transmission Date: 20140127
  Serious: Yes (Other)
  Sender: FDA-Public Use
  Company Number: US008553

PATIENT
  Age: 10 Year
  Sex: Male

DRUGS (1)
  1. GABITRIL [Suspect]
     Indication: CONVULSION
     Dosage: 12 MG (4 MG, 3 IN 1 D) ORAL
     Route: 048
     Dates: start: 19990329

REACTIONS (3)
  - Status epilepticus [None]
  - Myoclonus [None]
  - Tremor [None]
